FAERS Safety Report 6566737-3 (Version None)
Quarter: 2010Q1

REPORT INFORMATION
  Report Type: 
  Country: None (occurrence: None)
  Receive Date: 20100202
  Receipt Date: 20100119
  Transmission Date: 20100710
  Serious: Yes (Death, Life-Threatening, Hospitalization)
  Sender: FDA-Public Use
  Company Number: GB-MYLANLABS-2008S1013204

PATIENT
  Age: 61 Year
  Sex: Female
  Weight: 100 kg

DRUGS (5)
  1. CLOMIPRAMINE HCL [Suspect]
     Indication: DEPRESSION
     Route: 048
     Dates: end: 20060920
  2. METHYLENE BLUE [Interacting]
     Indication: PARATHYROID TUMOUR
     Dates: start: 20060920, end: 20090920
  3. ANASTROZOLE [Concomitant]
     Indication: BREAST CANCER
     Route: 048
  4. PROPRANOLOL [Concomitant]
     Indication: DRUG USE FOR UNKNOWN INDICATION
  5. ARIMIDEX [Concomitant]
     Indication: DRUG USE FOR UNKNOWN INDICATION

REACTIONS (10)
  - CEREBRAL DISORDER [None]
  - CLONUS [None]
  - COMA [None]
  - CONVULSION [None]
  - DIABETES INSIPIDUS [None]
  - DRUG INTERACTION [None]
  - HYPERTONIA [None]
  - HYPOTENSION [None]
  - MULTI-ORGAN FAILURE [None]
  - SEROTONIN SYNDROME [None]
